FAERS Safety Report 11896479 (Version 2)
Quarter: 2016Q1

REPORT INFORMATION
  Report Type: Report from Study
  Country: MX (occurrence: MX)
  Receive Date: 20160107
  Receipt Date: 20160122
  Transmission Date: 20160526
  Serious: No
  Sender: FDA-Public Use
  Company Number: PHHY2016MX000902

PATIENT
  Sex: Female

DRUGS (3)
  1. ULTIBRO BREEZHALER [Suspect]
     Active Substance: GLYCOPYRRONIUM\INDACATEROL
     Indication: BRONCHITIS
     Dosage: 1 DF, QD (INDACATEROL 110 UG, GLYCOPYRRONIUM BROMIDE 50 UG)
     Route: 065
     Dates: start: 20160104
  2. MIFLONIDE [Suspect]
     Active Substance: BUDESONIDE
     Indication: BRONCHITIS
     Dosage: 400 UG, Q8H (3 INHALATIONS)
     Route: 055
     Dates: start: 20160104
  3. NIMOTOP [Concomitant]
     Active Substance: NIMODIPINE
     Indication: PRODUCT USED FOR UNKNOWN INDICATION
     Dosage: UNK
     Route: 065

REACTIONS (1)
  - Hypoacusis [Unknown]
